FAERS Safety Report 5230514-6 (Version None)
Quarter: 2007Q1

REPORT INFORMATION
  Report Type: 
  Country: None (occurrence: None)
  Receive Date: 20070206
  Receipt Date: 20070126
  Transmission Date: 20070707
  Serious: Yes (Hospitalization, Other)
  Sender: FDA-Public Use
  Company Number: CA-JNJFOC-20060301100

PATIENT
  Sex: Female

DRUGS (5)
  1. REMICADE [Suspect]
     Indication: CROHN'S DISEASE
     Route: 042
  2. 5-ASA [Concomitant]
  3. IMURAN [Concomitant]
  4. METAMUCIL [Concomitant]
  5. PREDNISONE [Concomitant]

REACTIONS (2)
  - CERVIX CARCINOMA [None]
  - CYSTITIS [None]
